FAERS Safety Report 4442499-0 (Version None)
Quarter: 2004Q3

REPORT INFORMATION
  Report Type: 
  Country: None (occurrence: None)
  Receive Date: 20040903
  Receipt Date: 20040709
  Transmission Date: 20050211
  Serious: Yes (Other)
  Sender: FDA-Public Use
  Company Number: 2004UW14224

PATIENT
  Age: 74 Year
  Sex: Female
  Weight: 61.2356 kg

DRUGS (4)
  1. CRESTOR [Suspect]
     Indication: HYPERCHOLESTEROLAEMIA
     Dosage: 10 MG PO
     Route: 048
     Dates: start: 20040601
  2. ASPIRIN [Concomitant]
  3. PRILOSEC [Concomitant]
  4. MULTI-VITAMINS [Concomitant]

REACTIONS (2)
  - BACK PAIN [None]
  - HEADACHE [None]
